FAERS Safety Report 8801622 (Version 5)
Quarter: 2017Q1

REPORT INFORMATION
  Report Type: Report from Study
  Country: DE (occurrence: DE)
  Receive Date: 20120921
  Receipt Date: 20170228
  Transmission Date: 20170429
  Serious: Yes (Life-Threatening, Hospitalization)
  Sender: FDA-Public Use
  Company Number: DE-ROCHE-1102614

PATIENT
  Age: 74 Year
  Sex: Female
  Weight: 73 kg

DRUGS (22)
  1. PREGABALIN. [Concomitant]
     Active Substance: PREGABALIN
     Route: 065
  2. APREPITANT. [Suspect]
     Active Substance: APREPITANT
     Indication: METASTATIC GASTRIC CANCER
     Route: 048
     Dates: start: 20120814, end: 20120816
  3. DEXAMETHASON [Suspect]
     Active Substance: DEXAMETHASONE
     Indication: METASTATIC GASTRIC CANCER
     Route: 042
     Dates: start: 20120814
  4. RANITIC [Concomitant]
     Active Substance: RANITIDINE HYDROCHLORIDE
     Indication: PREMEDICATION
  5. TRASTUZUMAB [Suspect]
     Active Substance: TRASTUZUMAB
     Indication: ADENOCARCINOMA GASTRIC
     Route: 042
  6. CISPLATIN. [Suspect]
     Active Substance: CISPLATIN
     Indication: ADENOCARCINOMA GASTRIC
  7. TETRAZEPAM [Concomitant]
     Active Substance: TETRAZEPAM
     Route: 065
  8. AMITRIPTYLINE [Concomitant]
     Active Substance: AMITRIPTYLINE
     Route: 065
  9. PANTOZOL [Concomitant]
     Active Substance: PANTOPRAZOLE SODIUM
     Route: 065
  10. CISPLATIN. [Suspect]
     Active Substance: CISPLATIN
     Indication: METASTATIC GASTRIC CANCER
     Route: 042
     Dates: start: 20120814
  11. 5-FU [Suspect]
     Active Substance: FLUOROURACIL
     Indication: METASTATIC GASTRIC CANCER
     Route: 042
     Dates: start: 20120814
  12. METAMIZOL [Concomitant]
     Active Substance: METAMIZOLE SODIUM
     Route: 065
  13. ALDACTONE A [Concomitant]
     Active Substance: SPIRONOLACTONE
     Route: 065
  14. TRASTUZUMAB [Suspect]
     Active Substance: TRASTUZUMAB
     Indication: METASTATIC GASTRIC CANCER
     Route: 042
     Dates: start: 20120814
  15. SOLU-DECORTIN [Concomitant]
     Active Substance: PREDNISOLONE SODIUM SUCCINATE
     Route: 065
  16. ONDANSETRON [Suspect]
     Active Substance: ONDANSETRON
     Indication: METASTATIC GASTRIC CANCER
     Route: 042
     Dates: start: 20120814
  17. BISOPROLOL [Concomitant]
     Active Substance: BISOPROLOL
     Route: 065
  18. TAVEGIL [Concomitant]
     Active Substance: CLEMASTINE FUMARATE
     Indication: PREMEDICATION
  19. OXALIPLATIN. [Suspect]
     Active Substance: OXALIPLATIN
     Indication: METASTATIC GASTRIC CANCER
     Route: 042
  20. TORASEMID [Concomitant]
     Active Substance: TORSEMIDE
     Route: 065
  21. CERTOPARIN [Concomitant]
     Active Substance: CERTOPARIN SODIUM
     Route: 058
  22. HYDROMORPHONE [Concomitant]
     Active Substance: HYDROMORPHONE
     Route: 065

REACTIONS (13)
  - Dyspnoea [Recovered/Resolved]
  - Atrial fibrillation [Recovered/Resolved]
  - Vomiting [Recovered/Resolved]
  - Haematemesis [Recovered/Resolved]
  - Tumour haemorrhage [Recovered/Resolved]
  - Dyspnoea [Recovered/Resolved]
  - Pyrexia [Not Recovered/Not Resolved]
  - Hypersensitivity [Recovered/Resolved]
  - Pulmonary oedema [Recovered/Resolved]
  - Chills [Not Recovered/Not Resolved]
  - Bronchospasm [Not Recovered/Not Resolved]
  - Nausea [Recovered/Resolved]
  - Tumour ulceration [Recovered/Resolved]

NARRATIVE: CASE EVENT DATE: 20120814
